FAERS Safety Report 6590678-9 (Version None)
Quarter: 2010Q1

REPORT INFORMATION
  Report Type: 
  Country: None (occurrence: None)
  Receive Date: 20100219
  Receipt Date: 20100209
  Transmission Date: 20100710
  Serious: Yes (Hospitalization)
  Sender: FDA-Public Use
  Company Number: B0632962A

PATIENT
  Age: 6 Year
  Sex: Male

DRUGS (2)
  1. ZOVIRAX [Suspect]
     Indication: DRUG USE FOR UNKNOWN INDICATION
     Dosage: 6.6MGH THREE TIMES PER DAY
     Route: 042
     Dates: start: 20100208, end: 20100209
  2. VANCOMYCIN [Concomitant]
     Route: 042
     Dates: start: 20100209

REACTIONS (2)
  - EXTRAVASATION [None]
  - INJECTION SITE OEDEMA [None]
